FAERS Safety Report 8699157 (Version 5)
Quarter: 2014Q1

REPORT INFORMATION
  Report Type: Spontaneous
  Country: US (occurrence: None)
  Receive Date: 20120718
  Receipt Date: 20140227
  Transmission Date: 20141002
  Serious: Yes (Death, Other)
  Sender: FDA-Public Use
  Company Number: 2012TP000268

PATIENT
  Age: 76 Year
  Sex: Male

DRUGS (8)
  1. LIDODERM [Suspect]
     Indication: POST HERPETIC NEURALGIA
     Dosage: 2  PATCH; 1X; TOP
     Route: 061
  2. NEURONTIN [Concomitant]
  3. METHADONE HYDROCHLORIDE [Concomitant]
  4. MEGESTROL ACETATE [Concomitant]
  5. CLONIDINE TRANSDERMAL SYSTEM [Concomitant]
  6. LASIX [Concomitant]
  7. LEVOTHROID [Concomitant]
  8. VITAMIN D [Concomitant]

REACTIONS (10)
  - Renal failure [None]
  - Wrist fracture [None]
  - Hip fracture [None]
  - Peritoneal dialysis [None]
  - Condition aggravated [None]
  - Post herpetic neuralgia [None]
  - Pneumonia [None]
  - Asthenia [None]
  - Fatigue [None]
  - Feeling abnormal [None]
